FAERS Safety Report 7051588-6 (Version None)
Quarter: 2010Q4

REPORT INFORMATION
  Report Type: 
  Country: None (occurrence: None)
  Receive Date: 20101012
  Receipt Date: 20100930
  Transmission Date: 20110411
  Serious: Yes (Life-Threatening, Hospitalization, Other)
  Sender: FDA-Public Use
  Company Number: 2010AC000373

PATIENT
  Age: 64 Year
  Sex: Male

DRUGS (15)
  1. DIGOXIN [Suspect]
     Dosage: PO
     Route: 048
     Dates: start: 20060301, end: 20080601
  2. DIGOXIN [Suspect]
     Indication: HEART RATE IRREGULAR
     Dosage: PO
     Route: 048
     Dates: start: 20050101
  3. DIGOXIN [Suspect]
     Dosage: 0.25 MG;QD;PO
     Route: 048
     Dates: end: 20061001
  4. *METFORMIN [Concomitant]
  5. ASPIRIN [Concomitant]
  6. GLYBURIDE [Concomitant]
  7. GLUCOPHAGE [Concomitant]
  8. ENALAPRIL MALEATE AND HYDROCHLOROTHIAZIDE [Concomitant]
  9. TRAMADOL [Concomitant]
  10. LEVOTHYROXINE [Concomitant]
  11. TOPROL-XL [Concomitant]
  12. PROTONIX [Concomitant]
  13. DOPAMINE [Concomitant]
  14. ANTIBIOTICS [Concomitant]
  15. BLOOD TRANSFUSION [Concomitant]

REACTIONS (20)
  - ANXIETY [None]
  - ATRIOVENTRICULAR BLOCK COMPLETE [None]
  - BLOOD GLUCOSE INCREASED [None]
  - BUNDLE BRANCH BLOCK LEFT [None]
  - CHILLS [None]
  - DILATATION VENTRICULAR [None]
  - ECONOMIC PROBLEM [None]
  - HAEMOGLOBIN DECREASED [None]
  - HEART INJURY [None]
  - INFUSION SITE CELLULITIS [None]
  - LIVER FUNCTION TEST ABNORMAL [None]
  - MULTIPLE INJURIES [None]
  - PAIN [None]
  - PNEUMONIA [None]
  - PYREXIA [None]
  - SHOCK [None]
  - SYNCOPE [None]
  - UNEVALUABLE EVENT [None]
  - UPPER GASTROINTESTINAL HAEMORRHAGE [None]
  - VENTRICULAR EXTRASYSTOLES [None]
